FAERS Safety Report 21822988 (Version 2)
Quarter: 2025Q1

REPORT INFORMATION
  Report Type: Spontaneous
  Country: US (occurrence: US)
  Receive Date: 20230105
  Receipt Date: 20250103
  Transmission Date: 20250409
  Serious: Yes (Other)
  Sender: AMNEAL
  Company Number: US-AMNEAL PHARMACEUTICALS-2022-AMRX-00028

PATIENT
  Age: 27 Year
  Sex: Female

DRUGS (5)
  1. ACTIVELLA [Suspect]
     Active Substance: ESTRADIOL\NORETHINDRONE ACETATE
     Indication: Endometriosis
     Route: 048
     Dates: start: 20181026, end: 20190925
  2. ACTIVELLA [Suspect]
     Active Substance: ESTRADIOL\NORETHINDRONE ACETATE
     Dosage: 1 DOSAGE FORM, QD
     Route: 048
     Dates: start: 20190925, end: 20210216
  3. ELAGOLIX [Suspect]
     Active Substance: ELAGOLIX
     Indication: Endometriosis
     Route: 048
     Dates: start: 20181026, end: 20190925
  4. ELAGOLIX [Suspect]
     Active Substance: ELAGOLIX
     Route: 048
     Dates: start: 20190925, end: 20210216
  5. IBUPROFEN [Concomitant]
     Active Substance: IBUPROFEN
     Indication: Endometriosis
     Route: 065
     Dates: start: 20190926, end: 20210217

REACTIONS (1)
  - Drug exposure before pregnancy [Unknown]

NARRATIVE: CASE EVENT DATE: 20210101
